FAERS Safety Report 9335171 (Version 5)
Quarter: 2013Q4

REPORT INFORMATION
  Report Type: Spontaneous
  Country: JP (occurrence: JP)
  Receive Date: 20130606
  Receipt Date: 20131010
  Transmission Date: 20140711
  Serious: Yes (Hospitalization, Other)
  Sender: FDA-Public Use
  Company Number: JP-UCBSA-087525

PATIENT
  Age: 0 None
  Sex: Male

DRUGS (6)
  1. E KEPPRA [Suspect]
     Indication: EPILEPSY
     Dosage: 1000 MG/DAY
     Route: 064
     Dates: start: 20121012, end: 20121108
  2. E KEPPRA [Suspect]
     Indication: EPILEPSY
     Dosage: 1500 MG/DAY
     Route: 064
     Dates: start: 20121109, end: 20130426
  3. E KEPPRA [Suspect]
     Indication: EPILEPSY
     Dosage: UNKNOWN DOSE
     Route: 063
     Dates: start: 2013
  4. LAMICTAL [Suspect]
     Indication: EPILEPSY
     Dosage: 200 MG/DAY
     Route: 064
     Dates: start: 20121012, end: 20130426
  5. FOLIAMIN [Concomitant]
     Indication: VITAMIN SUPPLEMENTATION
     Dosage: 10 MG/DAY
     Route: 064
     Dates: start: 20121012, end: 20130426
  6. NOVORAPID [Concomitant]
     Indication: DIABETES MELLITUS
     Route: 064
     Dates: start: 20121130, end: 20130426

REACTIONS (4)
  - Drug withdrawal syndrome neonatal [Recovering/Resolving]
  - Apnoea [Recovering/Resolving]
  - Foetal exposure during pregnancy [Recovered/Resolved]
  - Exposure during breast feeding [Recovered/Resolved]
